FAERS Safety Report 5167500-0 (Version None)
Quarter: 2006Q4

REPORT INFORMATION
  Report Type: 
  Country: None (occurrence: None)
  Receive Date: 20061130
  Receipt Date: 20061121
  Transmission Date: 20070319
  Serious: Yes (Hospitalization, Other)
  Sender: FDA-Public Use
  Company Number: 2006-05914

PATIENT
  Sex: Female
  Weight: 2.8 kg

DRUGS (1)
  1. ATRACURIUM BESYLATE [Suspect]
     Indication: WRONG DRUG ADMINISTERED
     Dosage: 10 MG, SINGLE, INTRAMUSCULAR
     Route: 030
     Dates: start: 20021129

REACTIONS (14)
  - ACCIDENTAL OVERDOSE [None]
  - APNOEA [None]
  - ARRHYTHMIA [None]
  - ATRIAL SEPTAL DEFECT [None]
  - BLOOD PRESSURE IMMEASURABLE [None]
  - BRADYCARDIA [None]
  - CYANOSIS [None]
  - HYPERGLYCAEMIA [None]
  - HYPOTENSION [None]
  - PARALYSIS FLACCID [None]
  - RENAL FAILURE ACUTE [None]
  - RESPIRATORY ARREST [None]
  - RESPIRATORY FAILURE [None]
  - WRONG DRUG ADMINISTERED [None]
